FAERS Safety Report 11198740 (Version 2)
Quarter: 2015Q2

REPORT INFORMATION
  Report Type: Spontaneous
  Country: MY (occurrence: MY)
  Receive Date: 20150618
  Receipt Date: 20150622
  Transmission Date: 20150821
  Serious: Yes (Death)
  Sender: FDA-Public Use
  Company Number: MY-SA-2015SA085896

PATIENT
  Sex: Male

DRUGS (2)
  1. CLOFARABINE [Suspect]
     Active Substance: CLOFARABINE
     Indication: ACUTE MYELOID LEUKAEMIA
     Dosage: FREQUENCY 5/7
     Route: 042
     Dates: start: 20150422
  2. CYTARABINE. [Concomitant]
     Active Substance: CYTARABINE
     Dosage: DOSE:1 GRAM(S)/SQUARE METER

REACTIONS (2)
  - Bacterial sepsis [Fatal]
  - Toxicity to various agents [Fatal]
